FAERS Safety Report 13704365 (Version 2)
Quarter: 2017Q3

REPORT INFORMATION
  Report Type: Spontaneous
  Country: DE (occurrence: DE)
  Receive Date: 20170630
  Receipt Date: 20170717
  Transmission Date: 20171127
  Serious: Yes (Other)
  Sender: FDA-Public Use
  Company Number: DE-AUROBINDO-AUR-APL-2017-35929

PATIENT
  Sex: Male
  Weight: 70 kg

DRUGS (1)
  1. AMOXI-CLAVULAN AUROBINDO FILMTABLETTEN 875/125MG [Suspect]
     Active Substance: AMOXICILLIN\CLAVULANIC ACID
     Indication: MAXILLOFACIAL OPERATION
     Dosage: 1 DF, TWO TIMES A DAY
     Route: 048
     Dates: start: 20170515, end: 20170518

REACTIONS (3)
  - Cardiovascular insufficiency [Recovered/Resolved]
  - Skin reaction [Recovered/Resolved]
  - Poisoning [Recovered/Resolved]

NARRATIVE: CASE EVENT DATE: 20170516
